FAERS Safety Report 8330633-1 (Version None)
Quarter: 2012Q2

REPORT INFORMATION
  Report Type: 
  Country: None (occurrence: None)
  Receive Date: 20120502
  Receipt Date: 20120424
  Transmission Date: 20120825
  Serious: Yes (Hospitalization, Other)
  Sender: FDA-Public Use
  Company Number: JP-JNJFOC-20111207420

PATIENT
  Sex: Male
  Weight: 57 kg

DRUGS (10)
  1. DOVONEX [Concomitant]
     Indication: PSORIASIS
     Route: 061
     Dates: start: 20111213
  2. OLOPATADINE HCL [Concomitant]
     Indication: PSORIASIS
     Dates: start: 20111213, end: 20111219
  3. STELARA [Suspect]
     Indication: PSORIASIS
     Route: 058
     Dates: start: 20111202
  4. OXAROL [Concomitant]
     Indication: PSORIASIS
     Route: 061
     Dates: end: 20111209
  5. PYDOXAL [Concomitant]
     Indication: PROPHYLAXIS
     Route: 048
     Dates: start: 20111203, end: 20111219
  6. ACETAMINOPHEN [Concomitant]
     Dates: start: 20111213
  7. ISONIAZID [Suspect]
     Indication: PROPHYLAXIS
     Dates: start: 20111110, end: 20111201
  8. ISONIAZID [Suspect]
     Dates: start: 20111213, end: 20111218
  9. ANTEBATE [Concomitant]
     Indication: PSORIASIS
     Route: 061
  10. EPINASTINE HYDROCHLORIDE [Concomitant]
     Indication: PSORIASIS
     Route: 048

REACTIONS (4)
  - HEPATIC FUNCTION ABNORMAL [None]
  - DERMATITIS EXFOLIATIVE [None]
  - CHILLS [None]
  - COUGH [None]
